FAERS Safety Report 7434717-1 (Version None)
Quarter: 2011Q2

REPORT INFORMATION
  Report Type: 
  Country: None (occurrence: None)
  Receive Date: 20110425
  Receipt Date: 20110418
  Transmission Date: 20111010
  Serious: Yes (Disabling, Other)
  Sender: FDA-Public Use
  Company Number: DE-PFIZER INC-2011077043

PATIENT
  Age: 71 Year
  Sex: Male
  Weight: 85 kg

DRUGS (2)
  1. LYRICA [Suspect]
     Indication: ANXIETY DISORDER
     Dosage: 25 MG, 3X/DAY
     Dates: start: 20110126, end: 20110201
  2. LYRICA [Suspect]
     Dosage: 100 MG, 3X/DAY
     Dates: start: 20110201, end: 20110302

REACTIONS (4)
  - VISUAL ACUITY REDUCED [None]
  - OPTIC ATROPHY [None]
  - SCOTOMA [None]
  - OPTIC ISCHAEMIC NEUROPATHY [None]
